FAERS Safety Report 22194648 (Version 1)
Quarter: 2023Q2

REPORT INFORMATION
  Report Type: Other
  Country: US (occurrence: US)
  Receive Date: 20230411
  Receipt Date: 20230411
  Transmission Date: 20230721
  Serious: Yes (Death)
  Sender: FDA-Public Use
  Company Number: US-ALVOGEN-2023090387

PATIENT
  Age: 39 Year
  Sex: Female

DRUGS (3)
  1. AMPHETAMINE [Suspect]
     Active Substance: AMPHETAMINE
     Indication: Drug abuse
     Route: 065
  2. PRIMIDONE [Suspect]
     Active Substance: PRIMIDONE
     Indication: Drug abuse
     Route: 065
  3. BUTALBITAL [Suspect]
     Active Substance: BUTALBITAL
     Indication: Drug abuse
     Route: 065

REACTIONS (1)
  - Drug abuse [Fatal]
